FAERS Safety Report 10506462 (Version 1)
Quarter: 2014Q4

REPORT INFORMATION
  Report Type: Spontaneous
  Country: US (occurrence: US)
  Receive Date: 20141009
  Receipt Date: 20141009
  Transmission Date: 20150528
  Serious: No
  Sender: FDA-Public Use
  Company Number: US-BIOGENIDEC-2014BI101309

PATIENT
  Age: 55 Year

DRUGS (2)
  1. ASPIRIN. [Concomitant]
     Active Substance: ASPIRIN
  2. TECFIDERA [Suspect]
     Active Substance: DIMETHYL FUMARATE
     Indication: PRODUCT USED FOR UNKNOWN INDICATION

REACTIONS (7)
  - Medication error [Unknown]
  - Melaena [Unknown]
  - Pain of skin [Unknown]
  - Rash [Unknown]
  - Dyspnoea [Unknown]
  - Skin irritation [Unknown]
  - Nausea [Unknown]
